FAERS Safety Report 23687586 (Version 1)
Quarter: 2024Q1

REPORT INFORMATION
  Report Type: Spontaneous
  Country: US (occurrence: None)
  Receive Date: 20240329
  Receipt Date: 20240329
  Transmission Date: 20240410
  Serious: Yes (Hospitalization)
  Sender: FDA-Public Use
  Company Number: None

PATIENT
  Sex: Female

DRUGS (4)
  1. TALTZ [Suspect]
     Active Substance: IXEKIZUMAB
     Indication: Psoriasis
     Dates: start: 202401
  2. TALTZ AUTO INJ (3-PAK) [Concomitant]
  3. HUMIRA PEN [Concomitant]
  4. HUMIRA [Concomitant]

REACTIONS (2)
  - Myocardial infarction [None]
  - Therapy cessation [None]
